FAERS Safety Report 20660184 (Version 4)
Quarter: 2023Q1

REPORT INFORMATION
  Report Type: Spontaneous
  Country: US (occurrence: US)
  Receive Date: 20220331
  Receipt Date: 20230206
  Transmission Date: 20230418
  Serious: No
  Sender: FDA-Public Use
  Company Number: US-PFIZER INC-2021787842

PATIENT
  Age: 63 Year
  Sex: Female

DRUGS (2)
  1. IBRANCE [Suspect]
     Active Substance: PALBOCICLIB
     Dosage: 125 MG
     Dates: start: 20210507
  2. IBRANCE [Suspect]
     Active Substance: PALBOCICLIB
     Dosage: 125 MG
     Dates: start: 20210616

REACTIONS (5)
  - Nausea [Unknown]
  - Diarrhoea [Unknown]
  - Fatigue [Unknown]
  - Illness [Unknown]
  - Laboratory test abnormal [Unknown]
